FAERS Safety Report 7863836-0 (Version None)
Quarter: 2011Q4

REPORT INFORMATION
  Report Type: 
  Country: None (occurrence: None)
  Receive Date: 20111028
  Receipt Date: 20111019
  Transmission Date: 20120403
  Serious: No
  Sender: FDA-Public Use
  Company Number: US-BIOGENIDEC-2010BI029423

PATIENT
  Sex: Female

DRUGS (2)
  1. TYSABRI [Suspect]
     Route: 042
  2. TYSABRI [Suspect]
     Indication: MULTIPLE SCLEROSIS
     Route: 042
     Dates: start: 20070921, end: 20100804

REACTIONS (5)
  - FATIGUE [None]
  - FAECAL INCONTINENCE [None]
  - VISUAL IMPAIRMENT [None]
  - DEPRESSION [None]
  - SUPERFICIAL INJURY OF EYE [None]
